FAERS Safety Report 16543653 (Version 1)
Quarter: 2019Q3

REPORT INFORMATION
  Report Type: Spontaneous
  Country: US (occurrence: US)
  Receive Date: 20190527
  Receipt Date: 20190527
  Transmission Date: 20191004
  Serious: Yes (Hospitalization)
  Sender: FDA-Public Use
  Company Number: None

PATIENT
  Age: 53 Year
  Sex: Female

DRUGS (1)
  1. ABACAVIR  SULFATE-LAMIVUDINE TAB 600-300MG [Suspect]
     Active Substance: ABACAVIR SULFATE\LAMIVUDINE
     Dates: start: 201904, end: 201905

REACTIONS (2)
  - Heart rate increased [None]
  - Dyspnoea [None]

NARRATIVE: CASE EVENT DATE: 20190523
